FAERS Safety Report 7512903-X (Version None)
Quarter: 2011Q2

REPORT INFORMATION
  Report Type: 
  Country: None (occurrence: None)
  Receive Date: 20110531
  Receipt Date: 20101126
  Transmission Date: 20111010
  Serious: No
  Sender: FDA-Public Use
  Company Number: US-NOVEN-ALL1-2010-06200

PATIENT
  Sex: Female
  Weight: 18.141 kg

DRUGS (6)
  1. DAYTRANA [Suspect]
     Dosage: 10 MG, 1X/DAY:QD
     Route: 062
  2. DAYTRANA [Suspect]
     Dosage: 10 MG, QD
     Route: 062
     Dates: start: 20060101
  3. LEVOCARNITINE [Concomitant]
     Dosage: 2.5 ML, 2X/DAY:BID
     Route: 048
  4. DEPAKENE                           /00228501/ [Concomitant]
     Dosage: 250 MG, 1X/DAY:QD
     Route: 048
  5. SEROQUEL [Concomitant]
     Dosage: 25 MG, 2X/DAY:BID
     Route: 048
  6. TRANXENE [Concomitant]
     Dosage: 3.75 MG, 2X/DAY:BID
     Route: 048

REACTIONS (6)
  - DECREASED APPETITE [None]
  - PRODUCT QUALITY ISSUE [None]
  - WEIGHT GAIN POOR [None]
  - DRUG ADMINISTERED AT INAPPROPRIATE SITE [None]
  - OFF LABEL USE [None]
  - DRUG INEFFECTIVE [None]
